FAERS Safety Report 8488520-4 (Version None)
Quarter: 2012Q3

REPORT INFORMATION
  Report Type: 
  Country: None (occurrence: None)
  Receive Date: 20120705
  Receipt Date: 20120704
  Transmission Date: 20120928
  Serious: Yes (Hospitalization)
  Sender: FDA-Public Use
  Company Number: DE-B.I. PHARMACEUTICALS,INC./RIDGEFIELD-2012-DE-00637DE

PATIENT
  Sex: Male

DRUGS (1)
  1. HYDROXOCOBALAMIN [Suspect]

REACTIONS (2)
  - FALL [None]
  - SUBDURAL HAEMATOMA [None]
